FAERS Safety Report 8470951-X (Version None)
Quarter: 2012Q2

REPORT INFORMATION
  Report Type: 
  Country: None (occurrence: None)
  Receive Date: 20120627
  Receipt Date: 20120618
  Transmission Date: 20120825
  Serious: Yes (Other)
  Sender: FDA-Public Use
  Company Number: FR-VERTEX PHARMACEUTICALS INC.-000000000000000973

PATIENT
  Sex: Female

DRUGS (2)
  1. INCIVO [Suspect]
     Indication: HEPATITIS C
     Dosage: DOSAGE FORM: TABLET
     Route: 048
  2. ALL OTHER THERAPEUTIC PRODUCTS [Concomitant]
     Indication: HEPATITIS C

REACTIONS (1)
  - TOXIC SKIN ERUPTION [None]
